FAERS Safety Report 12749790 (Version 1)
Quarter: 2016Q3

REPORT INFORMATION
  Report Type: Spontaneous
  Country: US (occurrence: US)
  Receive Date: 20160915
  Receipt Date: 20160915
  Transmission Date: 20161109
  Serious: Yes (Disabling)
  Sender: FDA-Public Use
  Company Number: None

PATIENT
  Age: 46 Year
  Sex: Male
  Weight: 141.3 kg

DRUGS (13)
  1. BECLOMETHASONE (QVAR) [Concomitant]
  2. LASIX [Concomitant]
     Active Substance: FUROSEMIDE
  3. POTASSIUM CHLORIDE (MICRO K) [Concomitant]
  4. AZELASTINE (ASTEPRO) [Concomitant]
  5. LIORESAL [Concomitant]
     Active Substance: BACLOFEN
  6. LANSOPRAZOLE. [Concomitant]
     Active Substance: LANSOPRAZOLE
  7. COUMADIN [Concomitant]
     Active Substance: WARFARIN SODIUM
  8. MODAFINIL (PROVIGIL) [Concomitant]
  9. METFORMIN (GLUCOPHAGE) [Concomitant]
  10. PRAMIPEXOLE. [Suspect]
     Active Substance: PRAMIPEXOLE
     Indication: RESTLESS LEGS SYNDROME
     Route: 048
  11. HYDROCODONE (HOMATROPINE) (HYCODAN) [Concomitant]
  12. AZELASTINE (ASTELIN) [Concomitant]
  13. BENZONATATE (TESSALON) [Concomitant]

REACTIONS (4)
  - Malaise [None]
  - Gastrooesophageal reflux disease [None]
  - Syncope [None]
  - Cough [None]

NARRATIVE: CASE EVENT DATE: 20160509
